FAERS Safety Report 5301586-5 (Version None)
Quarter: 2007Q2

REPORT INFORMATION
  Report Type: 
  Country: None (occurrence: None)
  Receive Date: 20070412
  Receipt Date: 20070330
  Transmission Date: 20071010
  Serious: Yes (Life-Threatening, Hospitalization)
  Sender: FDA-Public Use
  Company Number: 2007-00962

PATIENT
  Age: 49 Year
  Sex: Male

DRUGS (2)
  1. VELCADE [Suspect]
     Indication: MULTIPLE MYELOMA
     Dosage: 1.30 MG/M2, UNK, INTRAVENOUS
     Route: 042
     Dates: start: 20070116, end: 20070126
  2. DOXORUBICIN INJECTION [Concomitant]

REACTIONS (3)
  - CHEST X-RAY ABNORMAL [None]
  - HYPOXIA [None]
  - PYREXIA [None]
